FAERS Safety Report 16360941 (Version 1)
Quarter: 2019Q3

REPORT INFORMATION
  Report Type: Spontaneous
  Country: US (occurrence: US)
  Receive Date: 20190524
  Receipt Date: 20190524
  Transmission Date: 20191004
  Serious: Yes (Disabling, Other)
  Sender: FDA-Public Use
  Company Number: None

PATIENT
  Age: 66 Year
  Sex: Female
  Weight: 45 kg

DRUGS (10)
  1. ZOLEDRONIC ACID [Suspect]
     Active Substance: ZOLEDRONIC ACID
     Indication: PROPHYLAXIS
     Dosage: ?          QUANTITY:1 IV 4MG Q6MONTHS;OTHER FREQUENCY:4 MG EVERY 6 MONTH;?
     Route: 042
  2. PAIN MEDS [Concomitant]
     Active Substance: UNSPECIFIED INGREDIENT
  3. CALCIUM [Concomitant]
     Active Substance: CALCIUM
  4. ANASTROZOLE. [Suspect]
     Active Substance: ANASTROZOLE
  5. NSAID [Concomitant]
     Active Substance: UNSPECIFIED INGREDIENT
  6. ZOLEDRONIC ACID [Suspect]
     Active Substance: ZOLEDRONIC ACID
     Indication: OSTEOPENIA
     Dosage: ?          QUANTITY:1 IV 4MG Q6MONTHS;OTHER FREQUENCY:4 MG EVERY 6 MONTH;?
     Route: 042
  7. VITAMIN C [Concomitant]
     Active Substance: ASCORBIC ACID
  8. VIT D [Concomitant]
     Active Substance: VITAMIN D NOS
  9. ZOLEDRONIC ACID [Suspect]
     Active Substance: ZOLEDRONIC ACID
     Indication: OSTEOPOROSIS
     Dosage: ?          QUANTITY:1 IV 4MG Q6MONTHS;OTHER FREQUENCY:4 MG EVERY 6 MONTH;?
     Route: 042
  10. LETROZOLE. [Suspect]
     Active Substance: LETROZOLE

REACTIONS (6)
  - Pain [None]
  - Nodule [None]
  - Rheumatoid factor increased [None]
  - Muscular weakness [None]
  - Gait disturbance [None]
  - Joint range of motion decreased [None]
